FAERS Safety Report 10761880 (Version 3)
Quarter: 2015Q2

REPORT INFORMATION
  Report Type: Spontaneous
  Country: JP (occurrence: JP)
  Receive Date: 20150204
  Receipt Date: 20150528
  Transmission Date: 20150821
  Serious: Yes (Other)
  Sender: FDA-Public Use
  Company Number: JP-UCBSA-2015002966

PATIENT
  Age: 1 Year
  Sex: Male

DRUGS (8)
  1. XYZAL [Suspect]
     Active Substance: LEVOCETIRIZINE DIHYDROCHLORIDE
     Indication: ECZEMA
     Dosage: 2X/DAY (BID); SYRUP
     Route: 048
     Dates: start: 20140602, end: 2014
  2. XYZAL [Suspect]
     Active Substance: LEVOCETIRIZINE DIHYDROCHLORIDE
     Indication: URTICARIA
     Dosage: 5ML DAILY 2X/DAY (BID); SYRUP
     Route: 048
     Dates: start: 20140426, end: 2014
  3. XYZAL [Suspect]
     Active Substance: LEVOCETIRIZINE DIHYDROCHLORIDE
     Dosage: UNK UNK, 2X/DAY (BID); SYRUP
     Route: 048
     Dates: start: 20141109
  4. RINDERON V [Concomitant]
     Active Substance: BETAMETHASONE VALERATE
     Indication: PRODUCT USED FOR UNKNOWN INDICATION
  5. GENTACIN [Concomitant]
     Active Substance: GENTAMICIN SULFATE
     Indication: PRODUCT USED FOR UNKNOWN INDICATION
  6. XYZAL [Suspect]
     Active Substance: LEVOCETIRIZINE DIHYDROCHLORIDE
     Dosage: 2.5 ML, BID; SYRUP
     Route: 048
     Dates: start: 20150105, end: 20150113
  7. DIAPP [Concomitant]
     Active Substance: DIAZEPAM
     Indication: PRODUCT USED FOR UNKNOWN INDICATION
     Dosage: DOSE OF 1/2, AND THEN AFTER 6-HOUR INTERVAL,  DOSE OF 1/6.
     Dates: start: 20141107, end: 20141109
  8. XYZAL [Suspect]
     Active Substance: LEVOCETIRIZINE DIHYDROCHLORIDE
     Dosage: UNK UNK, 2X/DAY (BID); SYRUP
     Route: 048
     Dates: start: 20141010, end: 2014

REACTIONS (5)
  - Aura [Unknown]
  - Febrile convulsion [Recovered/Resolved]
  - Exanthema subitum [Unknown]
  - Influenza [Unknown]
  - Headache [Unknown]

NARRATIVE: CASE EVENT DATE: 20141107
